FAERS Safety Report 6581800-9 (Version None)
Quarter: 2010Q1

REPORT INFORMATION
  Report Type: 
  Country: None (occurrence: None)
  Receive Date: 20100215
  Receipt Date: 20100209
  Transmission Date: 20100710
  Serious: Yes (Hospitalization)
  Sender: FDA-Public Use
  Company Number: PHHO2009DE08837

PATIENT
  Sex: Male
  Weight: 75.5 kg

DRUGS (3)
  1. SANDIMMUNE [Suspect]
  2. CERTICAN [Suspect]
     Indication: RENAL TRANSPLANT
     Dosage: 1.5 MG, QD
     Route: 048
     Dates: start: 20080108, end: 20080113
  3. MYFORTIC [Concomitant]
     Indication: RENAL TRANSPLANT
     Route: 048

REACTIONS (3)
  - BLOOD CREATININE INCREASED [None]
  - GLOMERULONEPHRITIS PROLIFERATIVE [None]
  - THERAPEUTIC AGENT TOXICITY [None]
